FAERS Safety Report 12524567 (Version 2)
Quarter: 2016Q3

REPORT INFORMATION
  Report Type: Spontaneous
  Country: US (occurrence: US)
  Receive Date: 20160704
  Receipt Date: 20160718
  Transmission Date: 20161109
  Serious: Yes (Other)
  Sender: FDA-Public Use
  Company Number: US-TEVA-672638USA

PATIENT
  Age: 41 Year
  Sex: Female

DRUGS (1)
  1. ZECUITY [Suspect]
     Active Substance: SUMATRIPTAN SUCCINATE
     Route: 062
     Dates: start: 20160602, end: 20160602

REACTIONS (10)
  - Application site urticaria [Recovering/Resolving]
  - Product leakage [Unknown]
  - Application site discomfort [Recovered/Resolved]
  - Application site pain [Recovered/Resolved]
  - Product adhesion issue [Recovered/Resolved]
  - Application site erythema [Recovering/Resolving]
  - Application site warmth [Recovered/Resolved]
  - Incorrect drug administration duration [Unknown]
  - Chemical injury [Recovered/Resolved]
  - Application site discolouration [Recovering/Resolving]

NARRATIVE: CASE EVENT DATE: 20160602
